FAERS Safety Report 20497049 (Version 1)
Quarter: 2022Q1

REPORT INFORMATION
  Report Type: Spontaneous
  Country: US (occurrence: US)
  Receive Date: 20220221
  Receipt Date: 20220221
  Transmission Date: 20220423
  Serious: No
  Sender: FDA-Public Use
  Company Number: US-SA-SAC20220211001317

PATIENT
  Age: 59 Year
  Sex: Female

DRUGS (2)
  1. FABRAZYME [Suspect]
     Active Substance: AGALSIDASE BETA
     Dosage: 5 MG, QOW
     Route: 042
     Dates: start: 201912
  2. FABRAZYME [Suspect]
     Active Substance: AGALSIDASE BETA
     Dosage: 70 MG, QOW
     Route: 042

REACTIONS (2)
  - Muscle spasms [Unknown]
  - Joint stiffness [Unknown]
